FAERS Safety Report 12333403 (Version 1)
Quarter: 2016Q2

REPORT INFORMATION
  Report Type: Spontaneous
  Country: US (occurrence: US)
  Receive Date: 20160504
  Receipt Date: 20160504
  Transmission Date: 20160815
  Serious: Yes (Hospitalization)
  Sender: FDA-Public Use
  Company Number: US-009507513-1604USA018642

PATIENT
  Age: 80 Year
  Sex: Female

DRUGS (4)
  1. ANTIMICROBIAL (UNSPECIFIED) [Concomitant]
     Active Substance: UNSPECIFIED INGREDIENT
  2. COLACE [Concomitant]
     Active Substance: DOCUSATE SODIUM
  3. KEYTRUDA [Suspect]
     Active Substance: PEMBROLIZUMAB
     Indication: METASTASES TO BLADDER
     Dosage: 2 MG/KG FOR 21 DAYS
     Route: 042
     Dates: start: 20160304
  4. VITAMINS (UNSPECIFIED) [Concomitant]
     Active Substance: VITAMINS

REACTIONS (5)
  - Product use issue [Unknown]
  - Constipation [Unknown]
  - Adverse event [Not Recovered/Not Resolved]
  - Fall [Unknown]
  - Hyponatraemia [Unknown]

NARRATIVE: CASE EVENT DATE: 20160304
